FAERS Safety Report 18123686 (Version 1)
Quarter: 2020Q3

REPORT INFORMATION
  Report Type: Report from Study
  Country: US (occurrence: US)
  Receive Date: 20200807
  Receipt Date: 20200807
  Transmission Date: 20201103
  Serious: Yes (Other)
  Sender: FDA-Public Use
  Company Number: US-AEGERION PHARMACEUTICAL, INC-AEGR004859

PATIENT
  Age: 33 Year
  Sex: Female
  Weight: 125.17 kg

DRUGS (1)
  1. MYALEPT [Suspect]
     Active Substance: METRELEPTIN
     Indication: CONGENITAL GENERALISED LIPODYSTROPHY
     Dosage: 5 MG, UNK
     Dates: start: 20200415, end: 20200518

REACTIONS (4)
  - Weight increased [Recovered/Resolved]
  - Condition aggravated [Recovered/Resolved]
  - Pancreatitis [Recovered/Resolved]
  - Insulin resistance [Recovered/Resolved]

NARRATIVE: CASE EVENT DATE: 20200518
